FAERS Safety Report 11055930 (Version 1)
Quarter: 2015Q2

REPORT INFORMATION
  Report Type: Spontaneous
  Country: US (occurrence: US)
  Receive Date: 20150422
  Receipt Date: 20150422
  Transmission Date: 20150821
  Serious: No
  Sender: FDA-Public Use
  Company Number: US-BAYER-2015-123023

PATIENT
  Sex: Female

DRUGS (17)
  1. CLARITIN [Concomitant]
     Active Substance: LORATADINE
     Dosage: 1 DF, QD
     Route: 048
  2. CELEBREX [Concomitant]
     Active Substance: CELECOXIB
     Dosage: 1 DF, QD FOR 30 DAYS
     Route: 048
     Dates: start: 20141208
  3. LEVAQUIN [Concomitant]
     Active Substance: LEVOFLOXACIN
     Dosage: 1 DF, QD FOR 7 DAYS
     Route: 048
     Dates: start: 20150120
  4. AMLODIPIN [Concomitant]
     Active Substance: AMLODIPINE BESYLATE
     Dosage: 1 DF, QD
     Route: 048
     Dates: start: 20150120
  5. FLONASE [Concomitant]
     Active Substance: FLUTICASONE PROPIONATE
     Dosage: 1 SPRAY IN EACH NOSTRIL
  6. ALEVE [Suspect]
     Active Substance: NAPROXEN SODIUM
  7. AMARYL [Concomitant]
     Active Substance: GLIMEPIRIDE
     Dosage: 1 DF, QD
     Route: 048
  8. FUROSEMIDE. [Concomitant]
     Active Substance: FUROSEMIDE
     Dosage: 1 DF, QD
     Route: 048
     Dates: start: 20150202
  9. LISINOPRIL. [Concomitant]
     Active Substance: LISINOPRIL
     Dosage: 1 DF, QD FOR 90 DAYS
     Route: 048
     Dates: start: 20150120
  10. METFORMIN [Concomitant]
     Active Substance: METFORMIN HYDROCHLORIDE
     Dosage: 1 DF, QD FOR 7 DAYS
     Route: 048
     Dates: start: 20150210
  11. PHILLIP^S COLON HEALTH [Concomitant]
     Dosage: 1 DF, QD
     Route: 048
  12. TYLENOL WITH CODEINE [Concomitant]
     Active Substance: ACETAMINOPHEN\CODEINE PHOSPHATE
     Dosage: 1 DF, PRN, EVERY 4 HRS
     Route: 048
  13. CLOPIDOGREL [Concomitant]
     Active Substance: CLOPIDOGREL BISULFATE
     Dosage: 1 DF, QD FOR 90 DAYS
     Route: 048
     Dates: start: 20150120
  14. COENZYME Q10 [Concomitant]
     Active Substance: UBIDECARENONE
     Dosage: 1 DF, QD AT BEDTIME
     Route: 048
  15. FOLIC ACID. [Concomitant]
     Active Substance: FOLIC ACID
     Dosage: 1 DF, QD
     Route: 048
  16. SENNA [SENNA ALEXANDRINA] [Concomitant]
     Dosage: 1 DF, QD AT BEDTIME
     Route: 048
     Dates: start: 20141202
  17. VITAMIN D3 [Concomitant]
     Active Substance: CHOLECALCIFEROL
     Dosage: 1 DF, QD
     Route: 048

REACTIONS (2)
  - Drug hypersensitivity [Unknown]
  - Nausea [Unknown]
